FAERS Safety Report 24117910 (Version 1)
Quarter: 2024Q3

REPORT INFORMATION
  Report Type: Spontaneous
  Country: US (occurrence: US)
  Receive Date: 20240722
  Receipt Date: 20240722
  Transmission Date: 20241017
  Serious: No
  Sender: RANBAXY
  Company Number: US-SUN PHARMACEUTICAL INDUSTRIES LTD-2023R1-425924

PATIENT
  Sex: Male

DRUGS (1)
  1. TESTOSTERONE [Suspect]
     Active Substance: TESTOSTERONE
     Indication: Androgen replacement therapy
     Dosage: 1 MILLIGRAM, WEEKLY
     Route: 065

REACTIONS (3)
  - Poor quality product administered [Unknown]
  - Product quality issue [Unknown]
  - Circumstance or information capable of leading to medication error [Unknown]
